FAERS Safety Report 5531233-9 (Version None)
Quarter: 2007Q4

REPORT INFORMATION
  Report Type: 
  Country: None (occurrence: None)
  Receive Date: 20071130
  Receipt Date: 20071126
  Transmission Date: 20080405
  Serious: Yes (Hospitalization)
  Sender: FDA-Public Use
  Company Number: FR-BRISTOL-MYERS SQUIBB COMPANY-13986278

PATIENT
  Age: 55 Year
  Sex: Male

DRUGS (2)
  1. ABILIFY [Suspect]
     Indication: SCHIZOPHRENIA
     Dates: start: 20070801
  2. LEPONEX [Suspect]
     Dosage: PREVIOUSLY WAS TAKING CLOZAPINE 300 MG/DAY, LEPONEX TAKEN 1/2 TAB PER DAY

REACTIONS (3)
  - ALOPECIA [None]
  - INSOMNIA [None]
  - SCHIZOPHRENIA, PARANOID TYPE [None]
